FAERS Safety Report 5133949-5 (Version None)
Quarter: 2006Q4

REPORT INFORMATION
  Report Type: 
  Country: None (occurrence: None)
  Receive Date: 20061018
  Receipt Date: 20061005
  Transmission Date: 20070319
  Serious: Yes (Hospitalization)
  Sender: FDA-Public Use
  Company Number: 2006BI014286

PATIENT
  Age: 68 Year
  Sex: Male

DRUGS (1)
  1. AVONEX [Suspect]
     Indication: MULTIPLE SCLEROSIS
     Dosage: 30 UG; QW; IM
     Route: 030

REACTIONS (5)
  - FALL [None]
  - HIP FRACTURE [None]
  - LUNG NEOPLASM MALIGNANT [None]
  - SMALL CELL CARCINOMA [None]
  - STAPHYLOCOCCAL INFECTION [None]
